FAERS Safety Report 21818915 (Version 5)
Quarter: 2023Q1

REPORT INFORMATION
  Report Type: Spontaneous
  Country: US (occurrence: US)
  Receive Date: 20230104
  Receipt Date: 20230207
  Transmission Date: 20230417
  Serious: No
  Sender: FDA-Public Use
  Company Number: US-PFIZER INC-PV202200133328

PATIENT
  Age: 11 Year
  Sex: Male
  Weight: 27.211 kg

DRUGS (2)
  1. GENOTROPIN [Suspect]
     Active Substance: SOMATROPIN
     Indication: Growth hormone deficiency
     Dosage: 1 MG, DAILY
     Dates: start: 202212
  2. GENOTROPIN [Suspect]
     Active Substance: SOMATROPIN
     Dosage: 1.0 MG/ML, 7 DAYS/WEEK

REACTIONS (4)
  - Product dose omission issue [Unknown]
  - Device use error [Unknown]
  - Drug dose omission by device [Unknown]
  - Device breakage [Unknown]
